FAERS Safety Report 9826457 (Version 3)
Quarter: 2014Q3

REPORT INFORMATION
  Report Type: Spontaneous
  Country: US (occurrence: None)
  Receive Date: 20140115
  Receipt Date: 20140804
  Transmission Date: 20150326
  Serious: No
  Sender: FDA-Public Use
  Company Number: 2013US008701

PATIENT
  Sex: Male

DRUGS (15)
  1. TRIAMTERENE (TRIAMTERENE) [Concomitant]
     Active Substance: TRIAMTERENE
  2. ATORVASTATIN (ATORVASTATIN) [Concomitant]
     Active Substance: ATORVASTATIN
  3. MELOXICAM (MELOXICAM) [Concomitant]
     Active Substance: MELOXICAM
  4. GLASSIA [Suspect]
     Active Substance: .ALPHA.1-PROTEINASE INHIBITOR HUMAN
     Indication: ALPHA-1 ANTI-TRYPSIN DEFICIENCY
     Route: 042
     Dates: start: 201306
  5. LATANO (LATANOPROST) [Concomitant]
  6. ADVAIR (FLUTICASONE PROPIONATE, SALMETEROL, XINAFOATE) [Concomitant]
  7. DIGOXIN (DIGOXIN) [Concomitant]
     Active Substance: DIGOXIN
  8. PAXIL /00830802/ (PAROXETINE HYDROCHLORIDE) [Concomitant]
  9. OMEPRAZOLE (OMEPRAZOLE) [Concomitant]
     Active Substance: OMEPRAZOLE
  10. PATANASE (OLOPATADINE HYDROCHLORIDE) [Concomitant]
  11. LISINOPRIL (LISINOPRIL) [Concomitant]
     Active Substance: LISINOPRIL
  12. SINGULAIR [Concomitant]
     Active Substance: MONTELUKAST SODIUM
  13. DILTIAZEM (DILTIAZEM) [Concomitant]
  14. HYDROCHLOROQUINE (HYDROCHLOROQUINE) [Concomitant]
  15. FML (FLUOROMETHOLONE) [Concomitant]

REACTIONS (1)
  - Weight decreased [None]
